FAERS Safety Report 14275459 (Version 1)
Quarter: 2017Q4

REPORT INFORMATION
  Report Type: Spontaneous
  Country: US (occurrence: US)
  Receive Date: 20171212
  Receipt Date: 20171212
  Transmission Date: 20180321
  Serious: No
  Sender: FDA-Public Use
  Company Number: US-PFIZER INC-2017531292

PATIENT
  Age: 56 Year
  Sex: Female

DRUGS (1)
  1. EMBEDA [Suspect]
     Active Substance: MORPHINE SULFATE\NALTREXONE HYDROCHLORIDE
     Dosage: UNK UNK, 2X/DAY [MORPHINE SULFATE: 20 MG /NALTREXONE HYDROCHLORIDE: 8MG]
     Route: 048
     Dates: end: 20171128

REACTIONS (1)
  - Rash [Recovering/Resolving]
